FAERS Safety Report 15758496 (Version 2)
Quarter: 2019Q1

REPORT INFORMATION
  Report Type: Other
  Country: CA (occurrence: CA)
  Receive Date: 20181225
  Receipt Date: 20190116
  Transmission Date: 20190417
  Serious: Yes (Death, Hospitalization, Other)
  Sender: FDA-Public Use
  Company Number: CA-INTERCEPT-PMOCA2018001828

PATIENT

DRUGS (2)
  1. OCALIVA [Suspect]
     Active Substance: OBETICHOLIC ACID
     Indication: PRIMARY BILIARY CHOLANGITIS
     Dosage: 5 MG, QW
     Route: 048
     Dates: start: 20180813
  2. PREDNISONE. [Concomitant]
     Active Substance: PREDNISONE

REACTIONS (6)
  - Blood bilirubin increased [Not Recovered/Not Resolved]
  - Malaise [Not Recovered/Not Resolved]
  - Sepsis [Fatal]
  - Ascites [Not Recovered/Not Resolved]
  - Hepatic failure [Fatal]
  - Renal failure [Unknown]

NARRATIVE: CASE EVENT DATE: 2018
